FAERS Safety Report 23543511 (Version 1)
Quarter: 2024Q1

REPORT INFORMATION
  Report Type: Spontaneous
  Country: US (occurrence: US)
  Receive Date: 20240220
  Receipt Date: 20240220
  Transmission Date: 20240410
  Serious: No
  Sender: FDA-Public Use
  Company Number: US-JNJFOC-20240247325

PATIENT
  Sex: Female

DRUGS (1)
  1. SPRAVATO [Interacting]
     Active Substance: ESKETAMINE
     Indication: Product used for unknown indication

REACTIONS (2)
  - Dissociation [Unknown]
  - Drug interaction [Unknown]
